FAERS Safety Report 7531701-4 (Version None)
Quarter: 2011Q2

REPORT INFORMATION
  Report Type: 
  Country: None (occurrence: None)
  Receive Date: 20110601
  Receipt Date: 20110523
  Transmission Date: 20111010
  Serious: Yes (Hospitalization)
  Sender: FDA-Public Use
  Company Number: 1000021071

PATIENT
  Age: 80 Year
  Sex: Female

DRUGS (3)
  1. SIMVASTATIN [Suspect]
     Indication: TYPE IIA HYPERLIPIDAEMIA
     Dosage: 40 MG (40 MG, 1 IN 1 D)
  2. NICERGOLINE [Concomitant]
  3. DILTIAZEM [Suspect]
     Indication: HYPERTENSION
     Dosage: 120 MG (60 MG, 2 IN 1 D);

REACTIONS (2)
  - MYOPATHY [None]
  - DRUG INTERACTION [None]
